FAERS Safety Report 17456606 (Version 1)
Quarter: 2020Q1

REPORT INFORMATION
  Report Type: Spontaneous
  Country: CA (occurrence: CA)
  Receive Date: 20200225
  Receipt Date: 20200225
  Transmission Date: 20200409
  Serious: Yes (Hospitalization)
  Sender: FDA-Public Use
  Company Number: CA-TEVA-2020-CA-1189404

PATIENT
  Age: 48 Year
  Sex: Female

DRUGS (2)
  1. METHYLPREDNISOLONE SODIUM SUCCINATE. [Suspect]
     Active Substance: METHYLPREDNISOLONE SODIUM SUCCINATE
     Indication: PRODUCT USED FOR UNKNOWN INDICATION
     Route: 042
  2. HYDROXYCHLOROQUINE [Suspect]
     Active Substance: HYDROXYCHLOROQUINE
     Indication: SYSTEMIC LUPUS ERYTHEMATOSUS
     Dosage: 200 MILLIGRAM DAILY;
     Route: 065

REACTIONS (18)
  - Chills [Unknown]
  - Lethargy [Unknown]
  - Pain [Unknown]
  - Pyrexia [Unknown]
  - Skin exfoliation [Unknown]
  - Acute generalised exanthematous pustulosis [Unknown]
  - Palmar erythema [Unknown]
  - Rebound effect [Unknown]
  - Swelling [Unknown]
  - Neutrophil count increased [Unknown]
  - Rash pustular [Unknown]
  - Arthralgia [Unknown]
  - Blister [Unknown]
  - Erythema [Unknown]
  - Pain of skin [Unknown]
  - Rash pruritic [Unknown]
  - Oedema [Unknown]
  - White blood cell count increased [Unknown]
